FAERS Safety Report 24223824 (Version 1)
Quarter: 2024Q3

REPORT INFORMATION
  Report Type: Spontaneous
  Country: US (occurrence: US)
  Receive Date: 20240819
  Receipt Date: 20240819
  Transmission Date: 20241016
  Serious: Yes (Other)
  Sender: DR REDDYS
  Company Number: US-DRL-USA-LIT/USA/24/0011829

PATIENT
  Age: 53 Year
  Sex: Male

DRUGS (6)
  1. VALGANCICLOVIR [Suspect]
     Active Substance: VALGANCICLOVIR
     Indication: Cytomegalovirus infection
     Dates: end: 202109
  2. VALGANCICLOVIR [Suspect]
     Active Substance: VALGANCICLOVIR
     Indication: Prophylaxis
     Dosage: TREATMENT-DOSE VALGANCICLOVIR
     Dates: end: 202109
  3. MYCOPHENOLATE MOFETIL [Suspect]
     Active Substance: MYCOPHENOLATE MOFETIL
     Indication: Cytomegalovirus infection
     Dates: end: 202109
  4. CIDOFOVIR [Suspect]
     Active Substance: CIDOFOVIR
     Indication: Cytomegalovirus infection
     Dates: end: 202109
  5. PREDNISONE [Concomitant]
     Active Substance: PREDNISONE
     Indication: Cytomegalovirus infection
     Dates: end: 202109
  6. PREDNISONE [Concomitant]
     Active Substance: PREDNISONE
     Dates: end: 202109

REACTIONS (2)
  - Neutropenia [Unknown]
  - Drug resistance [Unknown]
